FAERS Safety Report 4680045-7 (Version None)
Quarter: 2005Q2

REPORT INFORMATION
  Report Type: 
  Country: None (occurrence: None)
  Receive Date: 20050602
  Receipt Date: 20050404
  Transmission Date: 20051028
  Serious: Yes (Hospitalization)
  Sender: FDA-Public Use
  Company Number: DE-GLAXOSMITHKLINE-D0046293A

PATIENT
  Age: 70 Year
  Sex: Male
  Weight: 100 kg

DRUGS (7)
  1. LEUKERAN [Suspect]
     Indication: CHRONIC LYMPHOCYTIC LEUKAEMIA
     Dosage: 52MG EVERY TWO WEEKS
     Route: 048
     Dates: start: 20041007, end: 20050224
  2. NORVASC [Concomitant]
     Dosage: 5MG TWICE PER DAY
     Route: 065
  3. METOHEXAL [Concomitant]
     Dosage: 100MG IN THE MORNING
     Route: 048
  4. ACERCOMP [Concomitant]
     Dosage: 1U TWICE PER DAY
     Route: 065
  5. ALLO [Concomitant]
     Dosage: 300MG PER DAY
     Route: 065
  6. FUROSEMIDE [Concomitant]
     Dosage: 60MG PER DAY
     Route: 065
  7. KALIUM DURILES [Concomitant]
     Dosage: 1U THREE TIMES PER DAY
     Route: 065

REACTIONS (9)
  - ACUTE PSYCHOSIS [None]
  - AGNOSIA [None]
  - APRAXIA [None]
  - ASTHENIA [None]
  - INCONTINENCE [None]
  - LEUKOENCEPHALOPATHY [None]
  - PERSONALITY CHANGE [None]
  - PERSONALITY CHANGE DUE TO A GENERAL MEDICAL CONDITION [None]
  - PERSONALITY DISORDER [None]
